FAERS Safety Report 6086398-X (Version None)
Quarter: 2009Q1

REPORT INFORMATION
  Report Type: 
  Country: None (occurrence: None)
  Receive Date: 20090220
  Receipt Date: 20090212
  Transmission Date: 20090719
  Serious: Yes (Death)
  Sender: FDA-Public Use
  Company Number: US-GENENTECH-277300

PATIENT
  Sex: Male
  Weight: 71 kg

DRUGS (16)
  1. BEVACIZUMAB [Suspect]
     Indication: NON-SMALL CELL LUNG CANCER
     Dosage: 15 MG/KG, Q3W
     Route: 042
     Dates: start: 20081110
  2. CARBOPLATIN [Suspect]
     Indication: CHEMOTHERAPY
     Dosage: 6 AUC, Q3W
     Route: 042
     Dates: start: 20081110
  3. PACLITAXEL [Suspect]
     Indication: CHEMOTHERAPY
     Dosage: 200 MG/M2, Q3W
     Route: 042
     Dates: start: 20081110
  4. OMEPRAZOLE [Suspect]
     Indication: GASTROOESOPHAGEAL REFLUX DISEASE
     Dosage: UNK
     Route: 048
     Dates: start: 20080101
  5. CEFTAZIDIME [Concomitant]
     Indication: DRUG USE FOR UNKNOWN INDICATION
     Dosage: 2 G, UNK
     Route: 040
     Dates: start: 20090124
  6. DEXAMETHASONE [Concomitant]
     Indication: IMMUNOSUPPRESSANT DRUG THERAPY
     Dosage: 45 MG, BID
     Route: 048
     Dates: start: 20081105
  7. METOPROLOL TARTRATE [Concomitant]
     Indication: HYPERTENSION
     Dosage: 50 MG, BID
     Route: 048
     Dates: start: 20080101
  8. ASPIRIN [Concomitant]
     Indication: PROPHYLAXIS
     Dosage: 81 MG, QD
     Route: 048
     Dates: start: 20080101
  9. COLACE [Concomitant]
     Indication: CONSTIPATION
     Dosage: 100 MG, BID
     Route: 048
     Dates: start: 20081205
  10. MORPHINE [Concomitant]
     Indication: PAIN
     Dosage: 30 MG, Q4H
     Route: 048
     Dates: start: 20081022
  11. LEVOFLOXACIN [Concomitant]
     Indication: DRUG USE FOR UNKNOWN INDICATION
     Dosage: UNK
     Dates: start: 20090124
  12. ONDANSETRON [Concomitant]
     Indication: NAUSEA
     Dosage: 8 MG, Q8H
     Route: 048
     Dates: start: 20081205
  13. LORAZEPAM [Concomitant]
     Indication: ANXIETY
     Dosage: 2 MG, PRN
     Route: 048
     Dates: start: 20081205
  14. MORPHINE [Concomitant]
     Indication: PAIN
     Dosage: 45 MG, TID
     Dates: start: 20081022
  15. ZOMETA [Concomitant]
     Indication: PROPHYLAXIS
     Dosage: 4 MG, Q3W
     Dates: start: 20081110
  16. CEFOTAXIME [Concomitant]
     Indication: UPPER RESPIRATORY TRACT INFECTION
     Dosage: UNK MG, UNK
     Route: 040
     Dates: start: 20090124

REACTIONS (3)
  - COUGH [None]
  - RESPIRATORY DISTRESS [None]
  - TACHYCARDIA [None]
